FAERS Safety Report 13544516 (Version 1)
Quarter: 2017Q2

REPORT INFORMATION
  Report Type: Report from Study
  Country: FR (occurrence: FR)
  Receive Date: 20170515
  Receipt Date: 20170515
  Transmission Date: 20170830
  Serious: Yes (Hospitalization)
  Sender: FDA-Public Use
  Company Number: PHHO2017FR007592

PATIENT
  Age: 61 Year
  Sex: Female
  Weight: 47.95 kg

DRUGS (3)
  1. LDE 225 [Suspect]
     Active Substance: ERISMODEGIB
     Indication: MYELODYSPLASTIC SYNDROME
     Dosage: 400 MG
     Route: 048
     Dates: start: 20170117
  2. AZACITIDINE. [Suspect]
     Active Substance: AZACITIDINE
     Dosage: 75 MG/M2
     Route: 058
     Dates: start: 20170410, end: 20170419
  3. AZACITIDINE. [Suspect]
     Active Substance: AZACITIDINE
     Indication: MYELODYSPLASTIC SYNDROME
     Dosage: 75 MG/M2
     Route: 058
     Dates: start: 20170117, end: 20170123

REACTIONS (1)
  - Febrile neutropenia [Not Recovered/Not Resolved]

NARRATIVE: CASE EVENT DATE: 20170425
